FAERS Safety Report 5484508-6 (Version None)
Quarter: 2007Q4

REPORT INFORMATION
  Report Type: 
  Country: None (occurrence: None)
  Receive Date: 20071010
  Receipt Date: 20071003
  Transmission Date: 20080405
  Serious: Yes (Death, Hospitalization, Other)
  Sender: FDA-Public Use
  Company Number: 163-C5013-04050096

PATIENT
  Age: 58 Year
  Sex: Male

DRUGS (9)
  1. CC-5013                (LENALIDOMIDE) [Suspect]
     Indication: MULTIPLE MYELOMA
     Dosage: 50 MG, QOD, ORAL; 25 MG, QOD, ORAL; QOD, ORAL
     Route: 048
     Dates: start: 20040302, end: 20040311
  2. CC-5013                (LENALIDOMIDE) [Suspect]
     Indication: MULTIPLE MYELOMA
     Dosage: 50 MG, QOD, ORAL; 25 MG, QOD, ORAL; QOD, ORAL
     Route: 048
     Dates: start: 20040312, end: 20040323
  3. CC-5013                (LENALIDOMIDE) [Suspect]
     Indication: MULTIPLE MYELOMA
     Dosage: 50 MG, QOD, ORAL; 25 MG, QOD, ORAL; QOD, ORAL
     Route: 048
     Dates: start: 20040324, end: 20040407
  4. ASPIRIN [Concomitant]
  5. DULCOLAX [Concomitant]
  6. COLACE            (DOCUSATE SODIUM) [Concomitant]
  7. IUBPROFEN           (IBUPROFEN) [Concomitant]
  8. PROCRIT [Concomitant]
  9. NEUPOGEN [Concomitant]

REACTIONS (15)
  - ASTHENIA [None]
  - CONFUSIONAL STATE [None]
  - DISEASE PROGRESSION [None]
  - DISEASE RECURRENCE [None]
  - FATIGUE [None]
  - HAEMOGLOBIN DECREASED [None]
  - HAEMOPTYSIS [None]
  - MULTIPLE MYELOMA [None]
  - MUSCLE SPASMS [None]
  - NEUTROPENIA [None]
  - PLATELET COUNT DECREASED [None]
  - PNEUMONIA [None]
  - PRURITUS [None]
  - RENAL FAILURE ACUTE [None]
  - WHITE BLOOD CELL COUNT DECREASED [None]
